FAERS Safety Report 7065906-6 (Version None)
Quarter: 2010Q4

REPORT INFORMATION
  Report Type: 
  Country: None (occurrence: None)
  Receive Date: 20101027
  Receipt Date: 20101022
  Transmission Date: 20110411
  Serious: Yes (Life-Threatening)
  Sender: FDA-Public Use
  Company Number: FR-AMGEN-KDC403171

PATIENT

DRUGS (11)
  1. DARBEPOETIN ALFA [Suspect]
     Indication: RENAL FAILURE CHRONIC
     Dosage: 30 A?G, Q2WK
     Route: 042
     Dates: start: 20080930
  2. SOMATROPIN [Concomitant]
     Dosage: .8 MG, UNK
     Route: 058
     Dates: start: 20090324
  3. UN-ALFA [Concomitant]
     Dosage: 5 GTT, UNK
     Route: 048
     Dates: start: 20090811, end: 20091211
  4. FOSRENOL [Concomitant]
     Dosage: 500 MG, QID
     Route: 048
     Dates: start: 20081218
  5. VENOFER [Concomitant]
     Dosage: UNK UNK, QWK
     Route: 042
     Dates: start: 20090904
  6. CALTRATE                           /00108001/ [Concomitant]
     Dosage: UNK UNK, TID
     Route: 048
     Dates: start: 20091207
  7. RENITEC                            /00574902/ [Concomitant]
     Dosage: 5 MG, UNK
     Route: 048
     Dates: start: 20071221, end: 20091106
  8. THYROXIN [Concomitant]
     Dosage: 13 GTT, UNK
     Route: 048
     Dates: start: 20080707, end: 20091204
  9. L-CARNITINE [Concomitant]
     Dosage: 1 G, QD
     Route: 042
     Dates: start: 20090810
  10. LOVENOX [Concomitant]
     Dosage: UNK UNK, QD
     Route: 042
     Dates: start: 20090903
  11. KAYEXALATE [Concomitant]
     Dosage: UNK UNK, QWK

REACTIONS (1)
  - HYPERTENSION [None]
